FAERS Safety Report 6895073-0 (Version None)
Quarter: 2010Q3

REPORT INFORMATION
  Report Type: 
  Country: None (occurrence: None)
  Receive Date: 20100727
  Receipt Date: 20100712
  Transmission Date: 20110219
  Serious: Yes (Other)
  Sender: FDA-Public Use
  Company Number: 2010AP001432

PATIENT
  Age: 51 Year
  Sex: Male

DRUGS (4)
  1. TERBINAFINE HYDROCHLORIDE [Suspect]
     Indication: ONYCHOMYCOSIS
     Dosage: 250 MG;PO;QD
     Route: 048
     Dates: start: 20100420, end: 20100501
  2. NEVIRAPINE [Concomitant]
  3. EMTRICITABINE (EMTRICITABINE) [Concomitant]
  4. TENOFOVIR DISOPROXIL FUMARATE [Concomitant]

REACTIONS (1)
  - PANIC ATTACK [None]
